FAERS Safety Report 4944759-3 (Version None)
Quarter: 2006Q1

REPORT INFORMATION
  Report Type: 
  Country: None (occurrence: None)
  Receive Date: 20060315
  Receipt Date: 20060306
  Transmission Date: 20060701
  Serious: Yes (Other)
  Sender: FDA-Public Use
  Company Number: PHFR2006GB01071

PATIENT
  Age: 49 Year
  Sex: Female
  Weight: 77 kg

DRUGS (5)
  1. METFORMIN (NGX) [Suspect]
     Indication: DIABETES MELLITUS NON-INSULIN-DEPENDENT
     Dosage: 500 MG, BID
     Route: 048
     Dates: start: 20060210, end: 20060215
  2. METFORMIN (NGX) [Suspect]
     Dates: start: 20060220, end: 20060222
  3. ASPIRIN [Concomitant]
     Dosage: 75 MG/DAY
     Route: 048
     Dates: start: 20020101
  4. SIMVASTATIN [Concomitant]
     Dosage: 20 MG/DAY
     Route: 048
     Dates: start: 20050101
  5. ESTRADERM TTS 100 [Suspect]
     Dosage: 100 UG
     Route: 062
     Dates: start: 19980101

REACTIONS (2)
  - DRUG INTERACTION [None]
  - HEADACHE [None]
